FAERS Safety Report 4567174-3 (Version None)
Quarter: 2005Q1

REPORT INFORMATION
  Report Type: 
  Country: None (occurrence: None)
  Receive Date: 20050201
  Receipt Date: 20050120
  Transmission Date: 20050727
  Serious: Yes (Hospitalization)
  Sender: FDA-Public Use
  Company Number: US-GLAXOSMITHKLINE-A0541608A

PATIENT
  Age: 67 Year
  Sex: Female
  Weight: 96.4 kg

DRUGS (14)
  1. AVANDIA [Suspect]
     Dosage: 8MG PER DAY
     Route: 048
     Dates: start: 20041126, end: 20050110
  2. PREVACID [Concomitant]
  3. ACCUPRIL [Concomitant]
  4. LASIX [Concomitant]
  5. COZAAR [Concomitant]
  6. TOPROL-XL [Concomitant]
  7. TRICOR [Concomitant]
  8. ALBUTEROL [Concomitant]
     Indication: ASTHMA
     Route: 025
     Dates: start: 19991101
  9. ALLOPURINOL [Concomitant]
     Indication: GOUT
     Route: 048
     Dates: start: 20030712
  10. BEXTRA [Concomitant]
     Indication: ARTHRITIS
     Dosage: 20MG ALTERNATE DAYS
     Route: 048
     Dates: start: 20020916
  11. CRESTOR [Concomitant]
     Dosage: 10MG PER DAY
     Route: 048
     Dates: start: 20031024
  12. GLUCOPHAGE XR [Concomitant]
     Dosage: 50MG PER DAY
     Route: 048
     Dates: start: 19990920
  13. OMNICEF [Concomitant]
     Indication: PARONYCHIA
     Dosage: 313MG TWICE PER DAY
     Route: 048
     Dates: start: 20050103
  14. ZELNORM [Concomitant]
     Indication: NAUSEA
     Dosage: 3MG TWICE PER DAY
     Route: 048
     Dates: start: 20050108

REACTIONS (2)
  - BLOOD CREATININE INCREASED [None]
  - NAUSEA [None]
